FAERS Safety Report 11599432 (Version 1)
Quarter: 2015Q3

REPORT INFORMATION
  Report Type: Spontaneous
  Country: US (occurrence: US)
  Receive Date: 20150916
  Receipt Date: 20150916
  Transmission Date: 20151125
  Serious: No
  Sender: FDA-Public Use
  Company Number: US-ELI_LILLY_AND_COMPANY-US200711002951

PATIENT
  Age: 78 Year
  Sex: Female

DRUGS (8)
  1. VITAMIN D [Concomitant]
     Active Substance: CHOLECALCIFEROL
     Dosage: 800 U, DAILY (1/D)
  2. VITAMIN D [Concomitant]
     Active Substance: CHOLECALCIFEROL
     Dosage: 50000 U, WEEKLY (1/W)
     Dates: start: 20061129
  3. FORTEO [Suspect]
     Active Substance: TERIPARATIDE
     Dates: start: 200511
  4. PREVACID [Concomitant]
     Active Substance: LANSOPRAZOLE
  5. VITAMINS [Concomitant]
     Active Substance: VITAMINS
  6. SYNTHROID [Concomitant]
     Active Substance: LEVOTHYROXINE SODIUM
  7. GLUCOSAMINE/CHONDROITIN /01639101/ [Concomitant]
  8. VITAMIN D [Concomitant]
     Active Substance: CHOLECALCIFEROL
     Dosage: 50000 U, WEEKLY (1/W)
     Dates: start: 200704

REACTIONS (2)
  - Vitamin D decreased [Not Recovered/Not Resolved]
  - Mass [Recovered/Resolved]

NARRATIVE: CASE EVENT DATE: 200711
